FAERS Safety Report 24568633 (Version 2)
Quarter: 2024Q4

REPORT INFORMATION
  Report Type: Spontaneous
  Country: US (occurrence: US)
  Receive Date: 20241031
  Receipt Date: 20241231
  Transmission Date: 20250115
  Serious: Yes (Other)
  Sender: ALEXION PHARMACEUTICALS
  Company Number: US-ASTRAZENECA-202410USA024414US

PATIENT
  Age: 33 Year

DRUGS (14)
  1. FARXIGA [Suspect]
     Active Substance: DAPAGLIFLOZIN PROPANEDIOL
     Route: 065
  2. FARXIGA [Suspect]
     Active Substance: DAPAGLIFLOZIN PROPANEDIOL
     Route: 065
  3. FARXIGA [Suspect]
     Active Substance: DAPAGLIFLOZIN PROPANEDIOL
     Route: 065
  4. FARXIGA [Suspect]
     Active Substance: DAPAGLIFLOZIN PROPANEDIOL
     Route: 065
  5. ROSUVASTATIN [Suspect]
     Active Substance: ROSUVASTATIN
     Route: 065
  6. ROSUVASTATIN [Suspect]
     Active Substance: ROSUVASTATIN
     Route: 065
  7. ROSUVASTATIN [Suspect]
     Active Substance: ROSUVASTATIN
     Route: 065
  8. ROSUVASTATIN [Suspect]
     Active Substance: ROSUVASTATIN
     Route: 065
  9. ENTRESTO [Concomitant]
     Active Substance: SACUBITRIL\VALSARTAN
     Route: 048
  10. ENTRESTO [Concomitant]
     Active Substance: SACUBITRIL\VALSARTAN
  11. CARVEDILOL [Concomitant]
     Active Substance: CARVEDILOL
     Dosage: 3.25 MILLIGRAM, BID
     Route: 065
  12. CARVEDILOL [Concomitant]
     Active Substance: CARVEDILOL
     Dosage: 3.25 MILLIGRAM, BID
     Route: 065
  13. EPLERENONE [Concomitant]
     Active Substance: EPLERENONE
     Dosage: 11 MILLIGRAM, QD
     Route: 065
  14. EPLERENONE [Concomitant]
     Active Substance: EPLERENONE
     Dosage: 11 MILLIGRAM, QD
     Route: 065

REACTIONS (8)
  - Sepsis [Unknown]
  - Pneumonia [Unknown]
  - Ejection fraction abnormal [Recovered/Resolved]
  - Hypertension [Unknown]
  - Feeling hot [Unknown]
  - Hyperhidrosis [Unknown]
  - Flushing [Unknown]
  - Heart rate increased [Unknown]
